FAERS Safety Report 17672278 (Version 1)
Quarter: 2020Q2

REPORT INFORMATION
  Report Type: Spontaneous
  Country: US (occurrence: US)
  Receive Date: 20200415
  Receipt Date: 20200415
  Transmission Date: 20200713
  Serious: No
  Sender: FDA-Public Use
  Company Number: US-AMGEN INC.-USASP2019218966

PATIENT

DRUGS (1)
  1. AIMOVIG [Suspect]
     Active Substance: ERENUMAB-AOOE
     Indication: PRODUCT USED FOR UNKNOWN INDICATION
     Dosage: UNK
     Route: 065
     Dates: start: 2018

REACTIONS (5)
  - Swelling [Unknown]
  - Pain [Unknown]
  - Pruritus [Not Recovered/Not Resolved]
  - Therapeutic product effect decreased [Unknown]
  - Erythema [Not Recovered/Not Resolved]

NARRATIVE: CASE EVENT DATE: 2019
